FAERS Safety Report 6803475-3 (Version None)
Quarter: 2010Q2

REPORT INFORMATION
  Report Type: 
  Country: None (occurrence: None)
  Receive Date: 20100628
  Receipt Date: 20100617
  Transmission Date: 20101027
  Serious: Yes (Other)
  Sender: FDA-Public Use
  Company Number: GXKR2010CN06692

PATIENT
  Age: 40 Year
  Sex: Male

DRUGS (2)
  1. AMOXICILLIN [Suspect]
     Indication: PHARYNGITIS
     Dosage: UNK
     Route: 048
  2. AMOXICILLIN [Suspect]
     Indication: RESPIRATORY TRACT INFECTION

REACTIONS (5)
  - BLISTER [None]
  - NIKOLSKY'S SIGN [None]
  - PEMPHIGUS [None]
  - RASH PRURITIC [None]
  - SKIN LESION [None]
